FAERS Safety Report 9925732 (Version 2)
Quarter: 2014Q1

REPORT INFORMATION
  Report Type: Spontaneous
  Country: US (occurrence: None)
  Receive Date: 20140221
  Receipt Date: 20140318
  Transmission Date: 20141002
  Serious: Yes (Other)
  Sender: FDA-Public Use
  Company Number: AUR-APL-2014-01702

PATIENT
  Sex: Female
  Weight: 64.41 kg

DRUGS (2)
  1. SIMVASTATIN [Suspect]
     Indication: BLOOD CHOLESTEROL
  2. LEVETIRACETAM (LEVETIRACETAM) [Concomitant]

REACTIONS (1)
  - Goitre [None]
